FAERS Safety Report 9250469 (Version 1)
Quarter: 2013Q1

REPORT INFORMATION
  Report Type: Spontaneous
  Country: US (occurrence: None)
  Receive Date: 20130305
  Receipt Date: 20130305
  Transmission Date: 20140127
  Serious: Yes (Hospitalization)
  Sender: FDA-Public Use
  Company Number: 163-21880-12042774

PATIENT
  Age: 63 Year
  Sex: Male
  Weight: 105.24 kg

DRUGS (17)
  1. REVLIMID [Suspect]
     Indication: B-CELL SMALL LYMPHOCYTIC LYMPHOMA
     Dosage: 21 IN 21 D
     Route: 048
     Dates: start: 20120409, end: 20120420
  2. VICODIN (VICODIN) [Concomitant]
  3. ALLOPURINOL [Concomitant]
  4. ASPIRIN (ACETYLSALICYLIC ACID) [Concomitant]
  5. TOCOCALCIFEROL (ERGOCALCIFEROL) [Concomitant]
  6. KLONOPIN (CLONAZEPAM) (TABLETS) [Concomitant]
  7. DEXAMETHASONE (DEXAMETHASONE) [Concomitant]
  8. INSULIN (INSULIN) [Concomitant]
  9. METOPROLOL (METOPROLOL) [Concomitant]
  10. OMEPRAZOLE (OMEPRAZOLE) [Concomitant]
  11. ONDANZATRONE (ONDANSETRON) [Concomitant]
  12. PEG (PEGINTERFERON ALFA-2B) [Concomitant]
  13. ROVUSTATIN (ROSUVASTATIN) [Concomitant]
  14. SEVELEMER (SEVELAMER) [Concomitant]
  15. AMBIEN (ZOLPIDEM TARTRATE) [Concomitant]
  16. SENNA [Concomitant]
  17. RITUXIMAB (RITUXIMAB) [Concomitant]

REACTIONS (2)
  - Tumour flare [None]
  - B-cell small lymphocytic lymphoma [None]
